FAERS Safety Report 9029086 (Version 2)
Quarter: 2013Q3

REPORT INFORMATION
  Report Type: Spontaneous
  Country: FR (occurrence: FR)
  Receive Date: 20130122
  Receipt Date: 20130725
  Transmission Date: 20140515
  Serious: Yes (Hospitalization, Other)
  Sender: FDA-Public Use
  Company Number: FR-NICOBRDEVP-2013-00315

PATIENT
  Age: 34 Year
  Sex: Male

DRUGS (4)
  1. IBUPROFEN [Suspect]
     Indication: INFLUENZA
     Dosage: 200 MG, UNKNOWN
     Route: 048
     Dates: start: 20130102, end: 20130104
  2. IBUPROFEN [Suspect]
     Indication: INFLUENZA
     Dosage: 400 MG, UNKNOWN
     Route: 048
     Dates: start: 20130102, end: 20130104
  3. NEBCINE [Concomitant]
     Indication: PRODUCT USED FOR UNKNOWN INDICATION
     Route: 065
  4. INEXIUM                            /01479302/ [Concomitant]
     Indication: GASTRIC ULCER
     Dosage: 40 MG, UNKNOWN
     Route: 048

REACTIONS (10)
  - Haematochezia [Recovered/Resolved]
  - Hyperthermia [Recovered/Resolved]
  - Malaise [Recovered/Resolved]
  - Vertigo [Recovered/Resolved]
  - Nausea [Recovered/Resolved]
  - Vomiting [Recovered/Resolved]
  - Constipation [Recovered/Resolved]
  - Condition aggravated [Recovered/Resolved]
  - Overdose [Recovered/Resolved]
  - Medication error [Unknown]
